FAERS Safety Report 14673487 (Version 2)
Quarter: 2018Q2

REPORT INFORMATION
  Report Type: Report from Study
  Country: CL (occurrence: CL)
  Receive Date: 20180323
  Receipt Date: 20180413
  Transmission Date: 20180711
  Serious: Yes (Hospitalization)
  Sender: FDA-Public Use
  Company Number: CL-ASTELLAS-2018US013900

PATIENT
  Age: 55 Year
  Sex: Male

DRUGS (6)
  1. ZOLADEX [Suspect]
     Active Substance: GOSERELIN ACETATE
     Indication: PROSTATE CANCER
     Dosage: 10.8 MG, OTHER (EVERY 3 MONTHS)
     Route: 058
     Dates: start: 20170818
  2. CELECOXIB. [Concomitant]
     Active Substance: CELECOXIB
     Indication: PAIN
     Route: 048
     Dates: start: 20180222
  3. PLACEBO [Suspect]
     Active Substance: UNSPECIFIED INGREDIENT
     Indication: HORMONE-REFRACTORY PROSTATE CANCER
     Dosage: UNK, ONCE DAILY
     Route: 048
     Dates: start: 20170831
  4. PREGABALIN. [Concomitant]
     Active Substance: PREGABALIN
     Indication: PAIN
     Route: 048
     Dates: start: 20180222
  5. PARACETAMOL [Concomitant]
     Active Substance: ACETAMINOPHEN
     Indication: PAIN
     Route: 048
     Dates: start: 20180222
  6. TRAMADOL. [Concomitant]
     Active Substance: TRAMADOL
     Indication: PAIN
     Dosage: UNK UNK, THRICE DAILY
     Route: 048
     Dates: start: 20180222

REACTIONS (3)
  - Radiotherapy [Recovering/Resolving]
  - Back pain [Recovering/Resolving]
  - Spinal cord compression [Recovering/Resolving]

NARRATIVE: CASE EVENT DATE: 20180315
